FAERS Safety Report 14210137 (Version 3)
Quarter: 2018Q1

REPORT INFORMATION
  Report Type: Spontaneous
  Country: GB (occurrence: GB)
  Receive Date: 20171121
  Receipt Date: 20180206
  Transmission Date: 20180508
  Serious: Yes (Other)
  Sender: FDA-Public Use
  Company Number: GB-AMGEN-GBRSP2017172953

PATIENT
  Age: 68 Year
  Sex: Female

DRUGS (1)
  1. PROLIA [Suspect]
     Active Substance: DENOSUMAB
     Indication: OSTEOPOROSIS
     Dosage: 60 MG, Q6MO
     Route: 058
     Dates: start: 20161117, end: 20170607

REACTIONS (4)
  - Back pain [Not Recovered/Not Resolved]
  - Breast cancer [Unknown]
  - Musculoskeletal disorder [Unknown]
  - Mastitis [Recovered/Resolved]

NARRATIVE: CASE EVENT DATE: 20170110
